FAERS Safety Report 10885022 (Version 1)
Quarter: 2015Q1

REPORT INFORMATION
  Report Type: Spontaneous
  Country: US (occurrence: US)
  Receive Date: 20150304
  Receipt Date: 20150304
  Transmission Date: 20150721
  Serious: No
  Sender: FDA-Public Use
  Company Number: US-TEVA-468470USA

PATIENT
  Age: 52 Year
  Sex: Female
  Weight: 54.42 kg

DRUGS (3)
  1. MULTIVITAMIN [Concomitant]
     Active Substance: VITAMINS
  2. CETIRIZINE W/PSEUDOEPHEDRINE [Suspect]
     Active Substance: CETIRIZINE HYDROCHLORIDE\PSEUDOEPHEDRINE HYDROCHLORIDE
     Route: 048
     Dates: start: 201302, end: 201303
  3. CETIRIZINE W/PSEUDOEPHEDRINE [Suspect]
     Active Substance: CETIRIZINE HYDROCHLORIDE\PSEUDOEPHEDRINE HYDROCHLORIDE
     Indication: SEASONAL ALLERGY
     Dosage: 5MG/120MG
     Route: 048
     Dates: start: 20130202, end: 20130306

REACTIONS (2)
  - Epistaxis [Unknown]
  - Incorrect drug administration duration [Unknown]

NARRATIVE: CASE EVENT DATE: 201302
